FAERS Safety Report 9227221 (Version 1)
Quarter: 2013Q2

REPORT INFORMATION
  Report Type: Spontaneous
  Country: JP (occurrence: JP)
  Receive Date: 20130412
  Receipt Date: 20130412
  Transmission Date: 20140414
  Serious: Yes (Other)
  Sender: FDA-Public Use
  Company Number: PHHY2013JP022933

PATIENT
  Age: 85 Year
  Sex: Male

DRUGS (5)
  1. RIVASTIGMIN [Suspect]
     Indication: DEMENTIA ALZHEIMER^S TYPE
     Dosage: 18 MG, ONCE A DAY
     Route: 062
  2. SIGMART [Concomitant]
  3. BAYASPIRIN [Concomitant]
  4. NITOROL [Concomitant]
  5. LIPITOR [Concomitant]

REACTIONS (2)
  - Blood pressure decreased [Recovered/Resolved]
  - Syncope [Recovered/Resolved]
